FAERS Safety Report 25989536 (Version 1)
Quarter: 2025Q4

REPORT INFORMATION
  Report Type: Spontaneous
  Country: EU (occurrence: EU)
  Receive Date: 20251103
  Receipt Date: 20251103
  Transmission Date: 20260118
  Serious: Yes (Hospitalization)
  Sender: SANDOZ
  Company Number: None

PATIENT
  Age: 55 Year
  Sex: Female
  Weight: 102 kg

DRUGS (7)
  1. ALPRAZOLAM [Suspect]
     Active Substance: ALPRAZOLAM
     Indication: Anxiety
     Dosage: 1 DF, QD
     Route: 048
     Dates: start: 202510, end: 202510
  2. AMOXICILLIN [Suspect]
     Active Substance: AMOXICILLIN
     Indication: Tooth abscess
     Dosage: 3 DF, QD
     Route: 048
     Dates: start: 20250928, end: 20251006
  3. MORPHINE SULFATE [Suspect]
     Active Substance: MORPHINE SULFATE
     Indication: Pain
     Dosage: 1 DF, QD
     Route: 048
     Dates: start: 20251002, end: 20251006
  4. METRONIDAZOLE [Suspect]
     Active Substance: METRONIDAZOLE
     Indication: Tooth abscess
     Dosage: 1 DF, QD
     Route: 048
     Dates: start: 20251002, end: 20251006
  5. NEFOPAM HYDROCHLORIDE [Suspect]
     Active Substance: NEFOPAM HYDROCHLORIDE
     Indication: Pain
     Dosage: 4 DF, QD
     Route: 048
     Dates: start: 20250928, end: 20251001
  6. NEFOPAM HYDROCHLORIDE [Suspect]
     Active Substance: NEFOPAM HYDROCHLORIDE
     Dosage: 4 DF, QD
     Route: 048
     Dates: start: 20251001, end: 20251006
  7. ACETAMINOPHEN [Suspect]
     Active Substance: ACETAMINOPHEN
     Indication: Pain
     Dosage: 3 DF, QD
     Route: 048
     Dates: start: 20250928, end: 20251006

REACTIONS (1)
  - Mixed liver injury [Not Recovered/Not Resolved]

NARRATIVE: CASE EVENT DATE: 20251006
